FAERS Safety Report 5230810-2 (Version None)
Quarter: 2007Q1

REPORT INFORMATION
  Report Type: 
  Country: None (occurrence: None)
  Receive Date: 20070202
  Receipt Date: 20070122
  Transmission Date: 20070707
  Serious: Yes (Death, Hospitalization)
  Sender: FDA-Public Use
  Company Number: GXKR2007CA00981

PATIENT
  Age: 58 Year
  Sex: Female

DRUGS (8)
  1. ATORVASTATIN CALCIUM [Suspect]
     Indication: DYSLIPIDAEMIA
     Dosage: 80 MG, QD
  2. CYCLOSPORINE [Suspect]
     Indication: HEART TRANSPLANT
  3. CLOPIDOGREL [Suspect]
     Indication: PROPHYLAXIS
     Dosage: 75 MG, QD
  4. PREDNISONE TAB [Concomitant]
  5. AZATHIOPRINE [Concomitant]
  6. LISINOPRIL [Concomitant]
  7. ASPIRIN [Concomitant]
  8. EZETIMIBE (EZETIMIBE) [Concomitant]

REACTIONS (4)
  - CORONARY ARTERY DISEASE [None]
  - DRUG INTERACTION [None]
  - RENAL FAILURE ACUTE [None]
  - RHABDOMYOLYSIS [None]
